FAERS Safety Report 8045450-X (Version None)
Quarter: 2012Q1

REPORT INFORMATION
  Report Type: 
  Country: None (occurrence: None)
  Receive Date: 20120113
  Receipt Date: 20120104
  Transmission Date: 20120608
  Serious: Yes (Hospitalization)
  Sender: FDA-Public Use
  Company Number: FR-BRISTOL-MYERS SQUIBB COMPANY-16336646

PATIENT
  Age: 86 Year
  Sex: Female

DRUGS (7)
  1. LASIX [Concomitant]
  2. DILTIAZEM HYDROCHLORIDE [Suspect]
     Indication: ATRIAL FIBRILLATION
     Dosage: TILDIEM LP 300 MG CAPSULE,THERAPY ON MAR10
  3. VENTOLIN [Concomitant]
  4. POTASSIUM CHLORIDE [Concomitant]
  5. PREDNISOLONE [Concomitant]
  6. COUMADIN [Suspect]
     Indication: ATRIAL FIBRILLATION
     Dosage: 1DF:1/4 TABLET,THERAPY ON MAR10
     Route: 048
  7. SYMBICORT [Concomitant]

REACTIONS (7)
  - EOSINOPHILIA [None]
  - RASH [None]
  - PURPURA [None]
  - ENANTHEMA [None]
  - PRURITUS [None]
  - PYREXIA [None]
  - HEADACHE [None]
